FAERS Safety Report 5358202-6 (Version None)
Quarter: 2007Q2

REPORT INFORMATION
  Report Type: 
  Country: None (occurrence: None)
  Receive Date: 20070530
  Receipt Date: 20061006
  Transmission Date: 20071010
  Serious: Yes (Hospitalization)
  Sender: FDA-Public Use
  Company Number: US200605002294

PATIENT
  Age: 41 Year
  Sex: Female
  Weight: 102 kg

DRUGS (6)
  1. ZYPREXA [Suspect]
     Dosage: SEE IMAGE
     Dates: start: 20021001, end: 20031001
  2. ZYPREXA [Suspect]
     Dosage: SEE IMAGE
     Dates: start: 19970101
  3. QUETIAPINE FUMARATE [Concomitant]
  4. RISPERIDONE [Concomitant]
  5. VENLAFAXINE HCL [Concomitant]
  6. PRANDIN (DEFLAZACORT) [Concomitant]

REACTIONS (1)
  - DIABETES MELLITUS [None]
